FAERS Safety Report 7900987-6 (Version None)
Quarter: 2011Q4

REPORT INFORMATION
  Report Type: 
  Country: None (occurrence: None)
  Receive Date: 20111108
  Receipt Date: 20111103
  Transmission Date: 20120403
  Serious: Yes (Other)
  Sender: FDA-Public Use
  Company Number: US-SANOFI-AVENTIS-2011SA070021

PATIENT
  Age: 76 Year
  Sex: Male
  Weight: 109.54 kg

DRUGS (9)
  1. AMLODIPINE BESYLATE [Concomitant]
     Indication: BLOOD PRESSURE ABNORMAL
     Dates: start: 20010101
  2. MULTAQ [Suspect]
     Indication: ATRIAL FIBRILLATION
     Route: 048
     Dates: start: 20111021
  3. SYNTHROID [Concomitant]
     Indication: THYROID DISORDER
     Dates: start: 20080101
  4. ALISKIREN [Concomitant]
     Indication: BLOOD PRESSURE ABNORMAL
     Dates: start: 20080101
  5. MULTAQ [Suspect]
     Route: 048
     Dates: start: 20111021
  6. MULTAQ [Suspect]
     Route: 048
     Dates: start: 20110401
  7. MICARDIS [Concomitant]
     Indication: BLOOD PRESSURE ABNORMAL
     Dates: start: 20110801
  8. PAPAYA ENZYME [Concomitant]
     Dates: start: 20110601
  9. HERBAL PREPARATION [Concomitant]

REACTIONS (2)
  - DYSPNOEA [None]
  - THROMBOCYTOPENIA [None]
